FAERS Safety Report 24806904 (Version 5)
Quarter: 2025Q1

REPORT INFORMATION
  Report Type: Spontaneous
  Country: CN (occurrence: CN)
  Receive Date: 20250104
  Receipt Date: 20250225
  Transmission Date: 20250409
  Serious: Yes (Hospitalization, Other)
  Sender: JOHNSON AND JOHNSON
  Company Number: CN-JNJFOC-20241228675

PATIENT
  Age: 61 Year
  Sex: Male

DRUGS (4)
  1. TREMFYA [Suspect]
     Active Substance: GUSELKUMAB
     Indication: Psoriasis
     Route: 065
  2. TREMFYA [Suspect]
     Active Substance: GUSELKUMAB
     Dosage: WEEK 0, WEEK 4, AND SUBSEQUENT EVERY 8 WEEKS
     Route: 065
     Dates: start: 20241119
  3. AMOXICILLIN [Concomitant]
     Active Substance: AMOXICILLIN
  4. SPIRAMYCIN [Concomitant]
     Active Substance: SPIRAMYCIN

REACTIONS (2)
  - Lung adenocarcinoma [Unknown]
  - Neoplasm [Unknown]
